FAERS Safety Report 21745135 (Version 1)
Quarter: 2022Q4

REPORT INFORMATION
  Report Type: Report from Study
  Country: CO (occurrence: CO)
  Receive Date: 20221219
  Receipt Date: 20221219
  Transmission Date: 20230113
  Serious: Yes (Death, Life-Threatening, Hospitalization, Other)
  Sender: FDA-Public Use
  Company Number: CO-ABBVIE-4241560

PATIENT
  Age: 58 Year
  Sex: Male
  Weight: 58 kg

DRUGS (1)
  1. ZEMPLAR [Suspect]
     Active Substance: PARICALCITOL
     Indication: Chronic kidney disease
     Dosage: FORM STRENGTH: 5 MICROGRAM?FREQUENCY TEXT: POSTDIALYSIS
     Route: 042
     Dates: start: 20220713, end: 20221109

REACTIONS (8)
  - Death [Fatal]
  - Blood pressure abnormal [Not Recovered/Not Resolved]
  - Stress [Not Recovered/Not Resolved]
  - Shock [Not Recovered/Not Resolved]
  - Cerebrovascular accident [Fatal]
  - Headache [Not Recovered/Not Resolved]
  - Blood glucose abnormal [Not Recovered/Not Resolved]
  - Loss of consciousness [Not Recovered/Not Resolved]

NARRATIVE: CASE EVENT DATE: 20221111
